FAERS Safety Report 8359554-5 (Version None)
Quarter: 2012Q2

REPORT INFORMATION
  Report Type: 
  Country: None (occurrence: None)
  Receive Date: 20120515
  Receipt Date: 20120507
  Transmission Date: 20120825
  Serious: Yes (Other)
  Sender: FDA-Public Use
  Company Number: US-JNJFOC-20120507460

PATIENT
  Sex: Male
  Weight: 68.04 kg

DRUGS (4)
  1. HUMIRA [Suspect]
     Indication: PSORIASIS
     Route: 065
  2. STELARA [Suspect]
     Indication: PSORIASIS
     Route: 058
  3. STELARA [Suspect]
     Route: 058
     Dates: start: 20110101
  4. STELARA [Suspect]
     Route: 058
     Dates: end: 20110101

REACTIONS (2)
  - PSORIASIS [None]
  - PSORIATIC ARTHROPATHY [None]
